FAERS Safety Report 21194450 (Version 1)
Quarter: 2022Q3

REPORT INFORMATION
  Report Type: Spontaneous
  Country: FR (occurrence: FR)
  Receive Date: 20220810
  Receipt Date: 20220810
  Transmission Date: 20221026
  Serious: Yes (Hospitalization, Other)
  Sender: FDA-Public Use
  Company Number: FR-MYLANLABS-2022M1084142

PATIENT
  Age: 68 Year
  Sex: Male

DRUGS (2)
  1. SUNITINIB [Suspect]
     Active Substance: SUNITINIB
     Indication: Clear cell renal cell carcinoma
     Dosage: 50 MILLIGRAM, QD (SUNITINIB 50 MG/DAY 4 WEEKS/6 [SIC])
     Route: 065
  2. SUNITINIB [Suspect]
     Active Substance: SUNITINIB
     Dosage: UNK LATER RESTARTED AT A REDUCED DOSE)
     Route: 065

REACTIONS (2)
  - Skin ulcer [Recovered/Resolved]
  - Thrombocytopenia [Unknown]
